FAERS Safety Report 26008815 (Version 1)
Quarter: 2025Q4

REPORT INFORMATION
  Report Type: Report from Study
  Country: CH (occurrence: CH)
  Receive Date: 20251106
  Receipt Date: 20251106
  Transmission Date: 20260118
  Serious: Yes (Hospitalization, Other)
  Sender: ABBVIE
  Company Number: CH-ABBVIE-6521798

PATIENT
  Age: 70 Year
  Sex: Male

DRUGS (2)
  1. CARBIDOPA\LEVODOPA [Suspect]
     Active Substance: CARBIDOPA\LEVODOPA
     Indication: Parkinson^s disease
     Dosage: CURRENT DOSAGE: MD 6 ML, CRD 6.8 ML/H, CRN 4.9 ML/H, ED 1.1 ML
     Route: 050
     Dates: start: 2025
  2. CARBIDOPA\LEVODOPA [Suspect]
     Active Substance: CARBIDOPA\LEVODOPA
     Dosage: CURRENT DOSING: MD 5ML, CRD 6.6ML/H, CRN 5ML/H, ED 1.1ML
     Route: 050
     Dates: start: 20200806

REACTIONS (7)
  - Hospitalisation [Not Recovered/Not Resolved]
  - Enteral nutrition [Not Recovered/Not Resolved]
  - Device issue [Recovered/Resolved]
  - Lumbar vertebral fracture [Recovered/Resolved]
  - Dysphagia [Unknown]
  - Balance disorder [Unknown]
  - Fall [Unknown]

NARRATIVE: CASE EVENT DATE: 20251029
